FAERS Safety Report 6908631-1 (Version None)
Quarter: 2010Q3

REPORT INFORMATION
  Report Type: 
  Country: None (occurrence: None)
  Receive Date: 20100805
  Receipt Date: 20100728
  Transmission Date: 20110219
  Serious: Yes (Other)
  Sender: FDA-Public Use
  Company Number: AU-CELGENEUS-008-FK228-10031163

PATIENT
  Sex: Female
  Weight: 11.8 kg

DRUGS (2)
  1. ROMIDEPSIN [Suspect]
     Route: 051
     Dates: start: 20100304, end: 20100304
  2. ROMIDEPSIN [Suspect]
     Route: 051
     Dates: start: 20100311, end: 20100311

REACTIONS (4)
  - DISEASE PROGRESSION [None]
  - ELECTROCARDIOGRAM T WAVE INVERSION [None]
  - HYPOCALCAEMIA [None]
  - TROPONIN INCREASED [None]
